FAERS Safety Report 6606643-9 (Version None)
Quarter: 2010Q1

REPORT INFORMATION
  Report Type: 
  Country: None (occurrence: None)
  Receive Date: 20100226
  Receipt Date: 20100217
  Transmission Date: 20100710
  Serious: Yes (Hospitalization)
  Sender: FDA-Public Use
  Company Number: BE-GENENTECH-298475

PATIENT
  Sex: Male

DRUGS (5)
  1. RITUXIMAB [Suspect]
     Indication: CHRONIC LYMPHOCYTIC LEUKAEMIA
     Dosage: 375 MG/M2, Q28D
     Route: 042
     Dates: start: 20090901, end: 20091130
  2. DHAP [Suspect]
     Indication: CHRONIC LYMPHOCYTIC LEUKAEMIA
     Dosage: UNK UNK, Q28D
     Route: 042
     Dates: start: 20090901, end: 20091130
  3. BACTRIM DS [Concomitant]
     Indication: PROPHYLAXIS
     Dosage: 960 MG, 3/WEEK
     Route: 048
  4. DOCACICLO [Concomitant]
     Indication: ANTIVIRAL PROPHYLAXIS
     Dosage: UNK
     Route: 048
  5. SPORANOX [Concomitant]
     Indication: DRUG USE FOR UNKNOWN INDICATION
     Dosage: 10 ML, BID
     Route: 048
     Dates: end: 20100101

REACTIONS (5)
  - ASPERGILLOSIS [None]
  - DEPRESSED MOOD [None]
  - FATIGUE [None]
  - NEUTROPENIA [None]
  - STAPHYLOCOCCAL INFECTION [None]
